FAERS Safety Report 6834471-8 (Version None)
Quarter: 2010Q3

REPORT INFORMATION
  Report Type: 
  Country: None (occurrence: None)
  Receive Date: 20100712
  Receipt Date: 20070627
  Transmission Date: 20110219
  Serious: No
  Sender: FDA-Public Use
  Company Number: US-PFIZER INC-2007025279

PATIENT
  Sex: Female
  Weight: 77.1 kg

DRUGS (7)
  1. CHANTIX [Suspect]
     Indication: SMOKING CESSATION THERAPY
     Dates: start: 20070202
  2. LEXAPRO [Concomitant]
  3. HYDROCHLOROTHIAZIDE [Concomitant]
  4. ZOCOR [Concomitant]
  5. CLONAZEPAM [Concomitant]
  6. IBUPROFEN [Concomitant]
  7. PSEUDOEPHEDRINE HYDROCHLORIDE [Concomitant]
     Indication: MULTIPLE ALLERGIES

REACTIONS (3)
  - GINGIVAL BLEEDING [None]
  - GINGIVITIS [None]
  - HEPATIC ENZYME INCREASED [None]
